FAERS Safety Report 13594515 (Version 3)
Quarter: 2025Q1

REPORT INFORMATION
  Report Type: Spontaneous
  Country: AU (occurrence: AU)
  Receive Date: 20170530
  Receipt Date: 20250113
  Transmission Date: 20250409
  Serious: Yes (Other)
  Sender: MERCK
  Company Number: AU-009507513-1705AUS014423

PATIENT

DRUGS (1)
  1. KEYTRUDA [Suspect]
     Active Substance: PEMBROLIZUMAB
     Indication: Hodgkin^s disease

REACTIONS (2)
  - Immune-mediated adverse reaction [Unknown]
  - Product use in unapproved indication [Unknown]
